FAERS Safety Report 8843905 (Version 1)
Quarter: 2012Q4

REPORT INFORMATION
  Report Type: 
  Country: US (occurrence: US)
  Receive Date: 20121016
  Receipt Date: 20121016
  Transmission Date: 20130627
  Serious: Yes (Other)
  Sender: FDA-Public Use
  Company Number: US-JNJFOC-20121007656

PATIENT
  Sex: Male

DRUGS (2)
  1. SPORANOX [Suspect]
     Indication: PRODUCT USED FOR UNKNOWN INDICATION
     Route: 048
  2. SPORANOX [Suspect]
     Indication: PRODUCT USED FOR UNKNOWN INDICATION
     Route: 048

REACTIONS (8)
  - Pruritus [Unknown]
  - Fatigue [Unknown]
  - Depression [Unknown]
  - Liver injury [Unknown]
  - Vomiting [Unknown]
  - Pyrexia [Unknown]
  - Mood altered [Unknown]
  - Flatulence [Unknown]
